FAERS Safety Report 19001461 (Version 1)
Quarter: 2021Q1

REPORT INFORMATION
  Report Type: Spontaneous
  Country: US (occurrence: US)
  Receive Date: 20210311
  Receipt Date: 20210311
  Transmission Date: 20210420
  Serious: Yes (Other)
  Sender: FDA-Public Use
  Company Number: None

PATIENT
  Age: 61 Year
  Sex: Male
  Weight: 92 kg

DRUGS (26)
  1. ALORVASTATIN [Concomitant]
  2. METOPROLOL. [Concomitant]
     Active Substance: METOPROLOL
  3. EP;IFIBATIDE [Concomitant]
  4. NORMAL SALINE FLUID [Concomitant]
  5. MIDAZOIARN [Concomitant]
  6. NITROGLYCERIN INJECTION [Concomitant]
     Active Substance: NITROGLYCERIN
  7. PRASUGREL. [Concomitant]
     Active Substance: PRASUGREL
  8. ASPIRIN. [Concomitant]
     Active Substance: ASPIRIN
  9. CALCITRLOL [Concomitant]
  10. NIFEDLPINE [Concomitant]
  11. SULFUR HEXAFLUORIDE MICROSPHERE INJ [Concomitant]
  12. IOPAMIDOL [Concomitant]
     Active Substance: IOPAMIDOL
  13. ASPIRIN. [Concomitant]
     Active Substance: ASPIRIN
  14. ENOXAPARIN [Concomitant]
     Active Substance: ENOXAPARIN
  15. FUROSEMIDE. [Concomitant]
     Active Substance: FUROSEMIDE
  16. NITROGLYCERIN. [Concomitant]
     Active Substance: NITROGLYCERIN
  17. HEPARIN [Concomitant]
     Active Substance: HEPARIN SODIUM
  18. NORMAL SALINE FLUID [Concomitant]
  19. METOPROLOL. [Concomitant]
     Active Substance: METOPROLOL
  20. PANTOPRAZOLE [Concomitant]
     Active Substance: PANTOPRAZOLE
  21. LISINOPRIL. [Concomitant]
     Active Substance: LISINOPRIL
  22. EPTIFIBATIDE INFUSION [Concomitant]
  23. ONDARISENTRON [Concomitant]
  24. HEPARIN SODIUM INJ [Suspect]
     Active Substance: HEPARIN SODIUM
     Indication: ACUTE MYOCARDIAL INFARCTION
     Dosage: ?          OTHER DOSE:11000 IU HEPARIN ;OTHER FREQUENCY:OVER 1.5 HOURS ;?
     Route: 042
     Dates: start: 20210308, end: 20210308
  25. HEPARIN SODIUM INJ [Suspect]
     Active Substance: HEPARIN SODIUM
     Indication: PERCUTANEOUS CORONARY INTERVENTION
     Dosage: ?          OTHER DOSE:11000 IU HEPARIN ;OTHER FREQUENCY:OVER 1.5 HOURS ;?
     Route: 042
     Dates: start: 20210308, end: 20210308
  26. HERARIN SODIUM [Concomitant]

REACTIONS (2)
  - Therapeutic product effect decreased [None]
  - Drug level below therapeutic [None]

NARRATIVE: CASE EVENT DATE: 20210308
